FAERS Safety Report 9648809 (Version 1)
Quarter: 2013Q4

REPORT INFORMATION
  Report Type: Spontaneous
  Country: US (occurrence: None)
  Receive Date: 20131025
  Receipt Date: 20131025
  Transmission Date: 20140711
  Serious: Yes (Hospitalization)
  Sender: FDA-Public Use
  Company Number: None

PATIENT
  Age: 55 Year
  Sex: Female

DRUGS (5)
  1. 3,4 DIAMINOPYRIDINE [Suspect]
     Indication: MYASTHENIC SYNDROME
     Dosage: TWO TABS. TID.
     Dates: start: 20101015
  2. PREDNISONE [Concomitant]
  3. PRILOSEC [Concomitant]
  4. XANAX [Concomitant]
  5. ZOLOFT [Concomitant]

REACTIONS (1)
  - Pancreatitis acute [None]
